FAERS Safety Report 8924513 (Version 1)
Quarter: 2012Q4

REPORT INFORMATION
  Report Type: 
  Country: US (occurrence: US)
  Receive Date: 20121126
  Receipt Date: 20121126
  Transmission Date: 20130627
  Serious: Yes (Other)
  Sender: FDA-Public Use
  Company Number: US-PFIZER INC-2012278418

PATIENT
  Age: 60 Year
  Sex: Male

DRUGS (1)
  1. SUTENT [Suspect]
     Indication: METASTATIC RENAL CELL CARCINOMA
     Dosage: 37.5 mg, per day
     Route: 048
     Dates: start: 20120723, end: 20120927

REACTIONS (4)
  - Abasia [Unknown]
  - Pain in extremity [Recovered/Resolved]
  - Palmar erythema [Recovered/Resolved]
  - Plantar erythema [Recovered/Resolved]
